FAERS Safety Report 18955719 (Version 3)
Quarter: 2021Q2

REPORT INFORMATION
  Report Type: Spontaneous
  Country: IT (occurrence: IT)
  Receive Date: 20210301
  Receipt Date: 20210614
  Transmission Date: 20210717
  Serious: Yes (Other)
  Sender: FDA-Public Use
  Company Number: IT-PFIZER INC-2021207255

PATIENT
  Age: 58 Year
  Sex: Male

DRUGS (2)
  1. ZESSLY [Suspect]
     Active Substance: INFLIXIMAB
     Indication: COLITIS ULCERATIVE
     Dosage: 100 MG/M2, CYCLIC (FIRST DOSE)
     Route: 065
     Dates: start: 20200605
  2. ZESSLY [Suspect]
     Active Substance: INFLIXIMAB
     Dosage: 100 MG/M2, CYCLIC
     Route: 065
     Dates: start: 20210105, end: 20210105

REACTIONS (6)
  - Condition aggravated [Unknown]
  - Rectal tenesmus [Unknown]
  - C-reactive protein increased [Unknown]
  - Drug ineffective [Unknown]
  - Diarrhoea haemorrhagic [Unknown]
  - Abdominal pain [Unknown]

NARRATIVE: CASE EVENT DATE: 20210105
